FAERS Safety Report 4913643-3 (Version None)
Quarter: 2006Q1

REPORT INFORMATION
  Report Type: 
  Country: None (occurrence: None)
  Receive Date: 20060114
  Receipt Date: 20060114
  Transmission Date: 20060701
  Serious: Yes (Hospitalization)
  Sender: FDA-Public Use
  Company Number: None

PATIENT
  Age: 79 Year
  Sex: Male
  Weight: 54.8852 kg

DRUGS (7)
  1. XELODA [Suspect]
     Indication: COLON CANCER METASTATIC
     Dosage: 1000MG BID X 14 DAYS
     Dates: start: 20060123
  2. BEVACIZUMAB [Suspect]
     Indication: COLON CANCER METASTATIC
     Dosage: 7.5MG/KG Q3WK IV
     Route: 042
     Dates: start: 20060123
  3. TIMOPTIC [Concomitant]
  4. IRON [Concomitant]
  5. M.V.I. [Concomitant]
  6. COMPAZINE [Concomitant]
  7. MEGACE [Concomitant]

REACTIONS (4)
  - DEHYDRATION [None]
  - HYPOTENSION [None]
  - MUCOSAL INFLAMMATION [None]
  - WEIGHT DECREASED [None]
